FAERS Safety Report 19690789 (Version 12)
Quarter: 2023Q1

REPORT INFORMATION
  Report Type: Spontaneous
  Country: US (occurrence: US)
  Receive Date: 20210812
  Receipt Date: 20230125
  Transmission Date: 20230418
  Serious: Yes (Other)
  Sender: FDA-Public Use
  Company Number: US-PFIZER INC-2021894847

PATIENT
  Age: 66 Year
  Sex: Male

DRUGS (2)
  1. MEKTOVI [Suspect]
     Active Substance: BINIMETINIB
     Indication: Metastatic salivary gland cancer
     Dosage: 15 MG, 2X/DAY
     Route: 048
  2. MEKTOVI [Suspect]
     Active Substance: BINIMETINIB
     Dosage: 7.5 MG, 2X/DAY, (1/2 TABLET PO BID)
     Route: 048

REACTIONS (9)
  - Neuropathy peripheral [Unknown]
  - Off label use [Unknown]
  - Visual impairment [Unknown]
  - Dyspnoea exertional [Unknown]
  - Respiratory rate decreased [Unknown]
  - Echocardiogram abnormal [Unknown]
  - Ejection fraction abnormal [Unknown]
  - Heart rate decreased [Unknown]
  - Stress [Unknown]
